FAERS Safety Report 5870625-5 (Version None)
Quarter: 2008Q3

REPORT INFORMATION
  Report Type: 
  Country: None (occurrence: None)
  Receive Date: 20080904
  Receipt Date: 20080902
  Transmission Date: 20090109
  Serious: Yes (Hospitalization)
  Sender: FDA-Public Use
  Company Number: B0535459A

PATIENT
  Age: 9 Year
  Sex: Female

DRUGS (2)
  1. AMOXICILLIN [Suspect]
     Dosage: 250MG THREE TIMES PER DAY
     Route: 048
     Dates: start: 20080701, end: 20080702
  2. AMPICILLIN + CLOXACILLIN [Suspect]
     Dosage: 1000MG THREE TIMES PER DAY
     Route: 042
     Dates: start: 20080624, end: 20080630

REACTIONS (5)
  - PRURITUS GENERALISED [None]
  - RASH [None]
  - RASH GENERALISED [None]
  - RASH MACULAR [None]
  - SKIN TEST POSITIVE [None]
